FAERS Safety Report 9327653 (Version 1)
Quarter: 2013Q2

REPORT INFORMATION
  Report Type: Spontaneous
  Country: US (occurrence: US)
  Receive Date: 20130604
  Receipt Date: 20130604
  Transmission Date: 20140414
  Serious: No
  Sender: FDA-Public Use
  Company Number: US-AMGEN-USASP2013034724

PATIENT
  Age: 47 Year
  Sex: Male

DRUGS (2)
  1. ENBREL [Suspect]
     Indication: PSORIATIC ARTHROPATHY
     Dosage: 25 MG, 2 TIMES/WK
     Dates: start: 20001208
  2. YELLOW FEVER VACCINE [Concomitant]
     Dosage: UNK

REACTIONS (3)
  - Pain [Recovered/Resolved]
  - Blood cholesterol increased [Not Recovered/Not Resolved]
  - Weight decreased [Recovered/Resolved]
